FAERS Safety Report 4589611-0 (Version None)
Quarter: 2005Q1

REPORT INFORMATION
  Report Type: 
  Country: None (occurrence: None)
  Receive Date: 20050217
  Receipt Date: 20050202
  Transmission Date: 20050727
  Serious: Yes (Other)
  Sender: FDA-Public Use
  Company Number: 200500196

PATIENT
  Age: 20 Year
  Sex: Female
  Weight: 61 kg

DRUGS (9)
  1. BOTOX PURIFIED NEUROTOXIN COMPLEX [Suspect]
     Indication: DYSTONIA
     Dosage: 300 UNITS PRN IM
     Route: 030
     Dates: start: 20041108, end: 20041108
  2. TEGRETOL [Concomitant]
  3. SINEMET CR [Concomitant]
  4. SINEMET [Concomitant]
  5. DOMPERIDONE [Concomitant]
  6. ZOLOFT [Concomitant]
  7. LEVODOPA [Concomitant]
  8. FOLINIC ACID [Concomitant]
  9. ALERTEC [Concomitant]

REACTIONS (4)
  - DRUG EFFECT DECREASED [None]
  - GRAND MAL CONVULSION [None]
  - INFLUENZA LIKE ILLNESS [None]
  - PETIT MAL EPILEPSY [None]
